FAERS Safety Report 6106715-1 (Version None)
Quarter: 2009Q1

REPORT INFORMATION
  Report Type: 
  Country: None (occurrence: None)
  Receive Date: 20090305
  Receipt Date: 20090216
  Transmission Date: 20090719
  Serious: Yes (Hospitalization, Other)
  Sender: FDA-Public Use
  Company Number: WASE0902USA04260

PATIENT
  Age: 46 Year
  Sex: Male

DRUGS (3)
  1. INDOMETHACIN [Suspect]
  2. CLOPIDOGREL [Concomitant]
  3. ASPIRIN [Concomitant]

REACTIONS (6)
  - ANAEMIA [None]
  - CARDIAC FAILURE CONGESTIVE [None]
  - CONDITION AGGRAVATED [None]
  - DYSPNOEA [None]
  - PLEURITIC PAIN [None]
  - RENAL FAILURE CHRONIC [None]
